FAERS Safety Report 4746799-6 (Version None)
Quarter: 2005Q3

REPORT INFORMATION
  Report Type: 
  Country: None (occurrence: None)
  Receive Date: 20050815
  Receipt Date: 20050802
  Transmission Date: 20060218
  Serious: Yes (Hospitalization)
  Sender: FDA-Public Use
  Company Number: USA0508104406

PATIENT
  Age: 70 Year
  Sex: Female

DRUGS (1)
  1. HUMALOG [Suspect]

REACTIONS (1)
  - CARDIAC FAILURE CONGESTIVE [None]
